FAERS Safety Report 11181140 (Version 1)
Quarter: 2015Q2

REPORT INFORMATION
  Report Type: Spontaneous
  Country: CA (occurrence: CA)
  Receive Date: 20150611
  Receipt Date: 20150611
  Transmission Date: 20150821
  Serious: Yes (Other)
  Sender: FDA-Public Use
  Company Number: CA-ASTELLAS-2015US019713

PATIENT

DRUGS (1)
  1. PROGRAF [Suspect]
     Active Substance: TACROLIMUS\TACROLIMUS ANHYDROUS
     Indication: RENAL TRANSPLANT
     Route: 048
     Dates: start: 201202

REACTIONS (5)
  - Spinal cord disorder [Unknown]
  - Arthralgia [Unknown]
  - Arthritis [Unknown]
  - Arthrodesis [Unknown]
  - Pain [Unknown]

NARRATIVE: CASE EVENT DATE: 2013
